FAERS Safety Report 24056747 (Version 3)
Quarter: 2024Q3

REPORT INFORMATION
  Report Type: Spontaneous
  Country: IN (occurrence: IN)
  Receive Date: 20240705
  Receipt Date: 20240807
  Transmission Date: 20241017
  Serious: Yes (Other)
  Sender: ROCHE
  Company Number: IN-ROCHE-10000005147

PATIENT

DRUGS (2)
  1. TECENTRIQ [Suspect]
     Active Substance: ATEZOLIZUMAB
     Indication: Hepatocellular carcinoma
     Dosage: 3RD CYCLE
     Route: 065
  2. PHESGO [Suspect]
     Active Substance: HYALURONIDASE (HUMAN RECOMBINANT)\PERTUZUMAB\TRASTUZUMAB
     Indication: Hepatocellular carcinoma
     Route: 065

REACTIONS (2)
  - Hepatocellular carcinoma [Unknown]
  - Gene mutation [Unknown]
